FAERS Safety Report 16096378 (Version 1)
Quarter: 2019Q1

REPORT INFORMATION
  Report Type: Report from Study
  Country: IN (occurrence: IN)
  Receive Date: 20190320
  Receipt Date: 20190320
  Transmission Date: 20190418
  Serious: Yes (Hospitalization)
  Sender: FDA-Public Use
  Company Number: IN-MYLANLABS-2019M1025031

PATIENT
  Age: 39 Year
  Sex: Female

DRUGS (2)
  1. FOLINIC ACID [Suspect]
     Active Substance: LEUCOVORIN
     Indication: ECTOPIC PREGNANCY
     Dosage: ON DAY 2, DAY 4 AND DAY 6 AS PER THE STANDARD PROTOCOLS
     Route: 030
  2. METHOTREXATE. [Suspect]
     Active Substance: METHOTREXATE
     Indication: ECTOPIC PREGNANCY
     Dosage: 1 MILLIGRAM/KILOGRAM
     Route: 065

REACTIONS (1)
  - Drug ineffective [Unknown]
